FAERS Safety Report 8325675-6 (Version None)
Quarter: 2012Q2

REPORT INFORMATION
  Report Type: 
  Country: None (occurrence: None)
  Receive Date: 20120501
  Receipt Date: 20120501
  Transmission Date: 20120825
  Serious: Yes (Other)
  Sender: FDA-Public Use
  Company Number: None

PATIENT
  Age: 66 Year
  Sex: Male
  Weight: 82.1 kg

DRUGS (1)
  1. AMPYRA [Suspect]
     Indication: MULTIPLE SCLEROSIS
     Dosage: 10MG 2XDAY
     Dates: start: 20120306, end: 20120416

REACTIONS (13)
  - BALANCE DISORDER [None]
  - MUSCULAR WEAKNESS [None]
  - DYSSTASIA [None]
  - FATIGUE [None]
  - SLEEP DISORDER [None]
  - DYSPHAGIA [None]
  - MUSCULOSKELETAL DISORDER [None]
  - MYALGIA [None]
  - DISORIENTATION [None]
  - PHOTOPSIA [None]
  - FALL [None]
  - SOMNOLENCE [None]
  - GRIP STRENGTH DECREASED [None]
